FAERS Safety Report 7927387-7 (Version None)
Quarter: 2011Q4

REPORT INFORMATION
  Report Type: 
  Country: None (occurrence: None)
  Receive Date: 20111117
  Receipt Date: 20111117
  Transmission Date: 20120403
  Serious: Yes (Hospitalization)
  Sender: FDA-Public Use
  Company Number: None

PATIENT
  Sex: Female
  Weight: 75.9 kg

DRUGS (2)
  1. RIBAVIRIN [Suspect]
     Indication: HEPATITIS C
     Dosage: RIBAVIRIN 200MG BID PO
     Route: 048
     Dates: start: 20110930
  2. PEGASYS [Suspect]
     Indication: HEPATITIS C
     Dosage: PEGASYS 180 MCG X1 WEEKLY SC
     Route: 058
     Dates: start: 20110930

REACTIONS (1)
  - UPPER GASTROINTESTINAL HAEMORRHAGE [None]
